FAERS Safety Report 25199981 (Version 1)
Quarter: 2025Q2

REPORT INFORMATION
  Report Type: Spontaneous
  Country: CN (occurrence: CN)
  Receive Date: 20250415
  Receipt Date: 20250415
  Transmission Date: 20250717
  Serious: Yes (Other)
  Sender: TAKEDA
  Company Number: CN-TAKEDA-2025TUS036682

PATIENT
  Age: 77 Year
  Sex: Male
  Weight: 74.3 kg

DRUGS (4)
  1. ALBUMIN HUMAN [Suspect]
     Active Substance: ALBUMIN HUMAN
     Indication: Supplementation therapy
     Dosage: 20 GRAM, QD
     Dates: start: 20250325, end: 20250326
  2. FLURBIPROFEN AXETIL [Suspect]
     Active Substance: FLURBIPROFEN AXETIL
     Indication: Analgesic therapy
     Dosage: 50 MILLIGRAM, BID
     Dates: start: 20250321, end: 20250327
  3. CEFAZOLIN SODIUM [Suspect]
     Active Substance: CEFAZOLIN SODIUM
     Indication: Anti-infective therapy
     Dosage: 1 GRAM, BID
     Dates: start: 20250321, end: 20250327
  4. SODIUM CHLORIDE [Concomitant]
     Active Substance: SODIUM CHLORIDE
     Dosage: 100 MILLILITER, BID
     Dates: start: 20250321, end: 20250327

REACTIONS (1)
  - Hepatic function abnormal [Recovering/Resolving]

NARRATIVE: CASE EVENT DATE: 20250327
